FAERS Safety Report 12346994 (Version 1)
Quarter: 2016Q2

REPORT INFORMATION
  Report Type: Spontaneous
  Country: DK (occurrence: DK)
  Receive Date: 20160509
  Receipt Date: 20160509
  Transmission Date: 20160815
  Serious: Yes (Hospitalization)
  Sender: FDA-Public Use
  Company Number: DK-GUERBET LLC-1051655

PATIENT
  Age: 54 Year
  Sex: Male
  Weight: 102 kg

DRUGS (1)
  1. DOTAREM [Suspect]
     Active Substance: GADOTERATE MEGLUMINE

REACTIONS (4)
  - Throat irritation [Unknown]
  - Palpitations [Unknown]
  - Malaise [Unknown]
  - Swelling face [Unknown]

NARRATIVE: CASE EVENT DATE: 20160401
